FAERS Safety Report 15506796 (Version 3)
Quarter: 2022Q4

REPORT INFORMATION
  Report Type: Other
  Country: US (occurrence: None)
  Receive Date: 20181016
  Receipt Date: 20221124
  Transmission Date: 20230112
  Serious: Yes (Hospitalization, Other)
  Sender: FDA-Public Use
  Company Number: US-ROCHE-2195118

PATIENT
  Age: 51 Year
  Sex: Male
  Weight: 129.39 kg

DRUGS (2)
  1. OCREVUS [Suspect]
     Active Substance: OCRELIZUMAB
     Indication: Relapsing multiple sclerosis
     Route: 042
  2. OCREVUS [Suspect]
     Active Substance: OCRELIZUMAB
     Dosage: 4 TH DOSE OF MEDICATION
     Route: 042

REACTIONS (10)
  - Influenza [Recovered/Resolved]
  - Localised infection [Recovering/Resolving]
  - Malaise [Not Recovered/Not Resolved]
  - Peripheral swelling [Recovered/Resolved]
  - Musculoskeletal disorder [Recovering/Resolving]
  - Skin laceration [Unknown]
  - Dysstasia [Recovering/Resolving]
  - Diarrhoea [Recovered/Resolved]
  - Skin laceration [Unknown]
  - Off label use [Unknown]

NARRATIVE: CASE EVENT DATE: 20170101
